FAERS Safety Report 23751794 (Version 1)
Quarter: 2024Q2

REPORT INFORMATION
  Report Type: Spontaneous
  Country: ES (occurrence: ES)
  Receive Date: 20240417
  Receipt Date: 20240417
  Transmission Date: 20240716
  Serious: Yes (Hospitalization, Other)
  Sender: FDA-Public Use
  Company Number: ES-BAYER-2024A053823

PATIENT
  Age: 91 Year
  Sex: Male

DRUGS (13)
  1. XARELTO [Suspect]
     Active Substance: RIVAROXABAN
     Indication: Cardiac failure
     Dosage: 20 MG, QD
     Route: 048
     Dates: start: 20200215
  2. ACORAMIDIS [Suspect]
     Active Substance: ACORAMIDIS
     Dosage: UNK
     Dates: start: 20230301, end: 20231115
  3. FUROSEMIDE [Concomitant]
     Active Substance: FUROSEMIDE
     Indication: Cardiac amyloidosis
     Dosage: 100 MG, QD
     Route: 048
     Dates: start: 202303
  4. DAPAGLIFLOZIN [Concomitant]
     Active Substance: DAPAGLIFLOZIN
     Indication: Cardiac amyloidosis
     Dosage: 10 MG, QD
     Route: 048
     Dates: start: 20230405
  5. DUTASTERIDE\TAMSULOSIN [Concomitant]
     Active Substance: DUTASTERIDE\TAMSULOSIN
     Indication: Cardiac failure
     Dosage: 0.4 MG, QD
     Route: 048
     Dates: start: 20200215
  6. SPIRONOLACTONE [Concomitant]
     Active Substance: SPIRONOLACTONE
     Indication: Cardiac amyloidosis
     Dosage: 25 MG, QD
     Route: 048
     Dates: start: 20200625
  7. BOI K ASPARTICO [ASCORBIC ACID;ASPARTIC ACID;POTASSIUM] [Concomitant]
     Indication: Vitamin C
     Dosage: 1 CAPSULE QD
     Route: 048
     Dates: start: 20191215
  8. TAMSULOSIN [Concomitant]
     Active Substance: TAMSULOSIN
     Indication: Prostatic abscess
     Dosage: 0.4 MG, QD
     Route: 048
     Dates: start: 20180701
  9. SYMBICORT [Concomitant]
     Active Substance: BUDESONIDE\FORMOTEROL FUMARATE DIHYDRATE
     Indication: Allergy prophylaxis
     Dosage: 1 PUFF QD PO
     Dates: start: 20191215
  10. CALCIFEDIOL [Concomitant]
     Active Substance: CALCIFEDIOL
     Indication: Prophylaxis
     Dosage: 0.266 MG, QD
     Route: 048
     Dates: start: 20191215
  11. ACETAMINOPHEN [Concomitant]
     Active Substance: ACETAMINOPHEN
     Dosage: 1 G, QD
     Route: 048
     Dates: start: 20170701
  12. PFIZER-BIONTECH COVID-19 VACCINE [Concomitant]
     Active Substance: TOZINAMERAN
     Dosage: 2 DOSES
     Dates: start: 20210301
  13. PFIZER-BIONTECH COVID-19 VACCINE [Concomitant]
     Active Substance: TOZINAMERAN
     Dosage: 2 DOSES
     Dates: start: 20210322

REACTIONS (4)
  - Cardiac amyloidosis [Recovered/Resolved]
  - Haematuria [Recovered/Resolved]
  - Haematuria [Recovered/Resolved]
  - Product use in unapproved indication [Unknown]

NARRATIVE: CASE EVENT DATE: 20200407
